FAERS Safety Report 11648004 (Version 1)
Quarter: 2015Q4

REPORT INFORMATION
  Report Type: Spontaneous
  Country: US (occurrence: US)
  Receive Date: 20151021
  Receipt Date: 20151021
  Transmission Date: 20160304
  Serious: Yes (Other)
  Sender: FDA-Public Use
  Company Number: PHHY2015US125595

PATIENT
  Age: 89 Year
  Sex: Male

DRUGS (4)
  1. LEVETIRACETAM. [Suspect]
     Active Substance: LEVETIRACETAM
     Indication: MYOCLONUS
     Dosage: 1000 MG, BID
     Route: 065
  2. DIVALPROEX SODIUM DR [Suspect]
     Active Substance: DIVALPROEX SODIUM
     Indication: MYOCLONUS
     Dosage: 500 MG, BID
     Route: 065
  3. RIVASTIGMINE. [Suspect]
     Active Substance: RIVASTIGMINE
     Indication: DEMENTIA ALZHEIMER^S TYPE
     Dosage: 13.3 MG, QD
     Route: 062
  4. KLONOPIN [Suspect]
     Active Substance: CLONAZEPAM
     Indication: MYOCLONUS
     Dosage: 0.25 MG, QD
     Route: 065

REACTIONS (1)
  - Drug ineffective [Unknown]
